FAERS Safety Report 13943586 (Version 4)
Quarter: 2018Q1

REPORT INFORMATION
  Report Type: Report from Study
  Country: JP (occurrence: JP)
  Receive Date: 20170907
  Receipt Date: 20180314
  Transmission Date: 20180508
  Serious: Yes (Hospitalization, Other)
  Sender: FDA-Public Use
  Company Number: JP-AMGEN-JPNNI2017105835

PATIENT
  Age: 78 Year
  Sex: Male
  Weight: 50 kg

DRUGS (19)
  1. DEXAMETHASONE SODIUM PHOSPHATE. [Concomitant]
     Active Substance: DEXAMETHASONE SODIUM PHOSPHATE
     Indication: NON-HODGKIN^S LYMPHOMA
     Dosage: UNK
     Route: 065
  2. RITUXIMAB RECOMBINANT [Concomitant]
     Active Substance: RITUXIMAB
     Dosage: 375 MG/M2, UNK
     Route: 041
     Dates: start: 20160215, end: 20160215
  3. FINIBAX [Concomitant]
     Active Substance: DORIPENEM MONOHYDRATE
     Indication: FEBRILE NEUTROPENIA
     Dosage: 0.25 G, TID
     Route: 041
     Dates: start: 20160131, end: 20160208
  4. PEGFILGRASTIM [Suspect]
     Active Substance: PEGFILGRASTIM
     Dosage: 3.6 MG, UNK
     Route: 058
     Dates: start: 20160216, end: 20160216
  5. IFOMIDE [Concomitant]
     Active Substance: IFOSFAMIDE
     Dosage: 750 MG/M2, UNK
     Route: 041
     Dates: start: 20160211, end: 20160213
  6. IFOMIDE [Concomitant]
     Active Substance: IFOSFAMIDE
     Dosage: 750 MG/M2, UNK
     Route: 041
     Dates: start: 20160303, end: 20160305
  7. ETOPOSIDE. [Concomitant]
     Active Substance: ETOPOSIDE
     Dosage: 50 MG/M2, UNK
     Route: 041
     Dates: start: 20160211, end: 20160213
  8. ETOPOSIDE. [Concomitant]
     Active Substance: ETOPOSIDE
     Dosage: 50 MG/M2, UNK
     Route: 041
     Dates: start: 20160303, end: 20160305
  9. CARBOPLATIN. [Concomitant]
     Active Substance: CARBOPLATIN
     Dosage: 150 MG/M2, UNK
     Route: 041
     Dates: start: 20160211, end: 20160211
  10. IFOMIDE [Concomitant]
     Active Substance: IFOSFAMIDE
     Indication: NON-HODGKIN^S LYMPHOMA
     Dosage: 750 MG/M2, UNK
     Route: 041
     Dates: start: 20160121, end: 20160123
  11. RITUXIMAB RECOMBINANT [Concomitant]
     Active Substance: RITUXIMAB
     Dosage: 375 MG/M2, UNK
     Route: 041
     Dates: start: 20160307, end: 20160307
  12. DEXAMETHASONE SODIUM PHOSPHATE. [Concomitant]
     Active Substance: DEXAMETHASONE SODIUM PHOSPHATE
     Dosage: UNK
     Route: 065
  13. PEGFILGRASTIM [Suspect]
     Active Substance: PEGFILGRASTIM
     Dosage: 3.6 MG, UNK
     Route: 058
     Dates: start: 20160308, end: 20160308
  14. ETOPOSIDE. [Concomitant]
     Active Substance: ETOPOSIDE
     Indication: NON-HODGKIN^S LYMPHOMA
     Dosage: 50 MG/M2, UNK
     Route: 041
     Dates: start: 20160121, end: 20160123
  15. CARBOPLATIN. [Concomitant]
     Active Substance: CARBOPLATIN
     Indication: NON-HODGKIN^S LYMPHOMA
     Dosage: 150 MG/M2, UNK
     Route: 041
     Dates: start: 20160121, end: 20160121
  16. PEGFILGRASTIM [Suspect]
     Active Substance: PEGFILGRASTIM
     Indication: COLONY STIMULATING FACTOR PROPHYLAXIS
     Dosage: 3.6 MG, UNK
     Route: 058
     Dates: start: 20160127, end: 20160127
  17. CARBOPLATIN. [Concomitant]
     Active Substance: CARBOPLATIN
     Dosage: 150 MG/M2, UNK
     Route: 041
     Dates: start: 20160303, end: 20160303
  18. RITUXIMAB RECOMBINANT [Concomitant]
     Active Substance: RITUXIMAB
     Indication: NON-HODGKIN^S LYMPHOMA
     Dosage: 375 MG/M2, UNK
     Route: 041
     Dates: start: 20160125, end: 20160125
  19. DEXAMETHASONE SODIUM PHOSPHATE. [Concomitant]
     Active Substance: DEXAMETHASONE SODIUM PHOSPHATE
     Dosage: UNK
     Route: 065

REACTIONS (2)
  - Pyrexia [Recovered/Resolved]
  - Febrile neutropenia [Recovered/Resolved]

NARRATIVE: CASE EVENT DATE: 20160131
